FAERS Safety Report 9844426 (Version 2)
Quarter: 2014Q1

REPORT INFORMATION
  Report Type: Spontaneous
  Country: AT (occurrence: AT)
  Receive Date: 20140127
  Receipt Date: 20140127
  Transmission Date: 20141002
  Serious: Yes (Other)
  Sender: FDA-Public Use
  Company Number: AT-ASTRAZENECA-2013SE34249

PATIENT
  Age: 30 Year
  Sex: Female
  Weight: 63 kg

DRUGS (9)
  1. PULMICORT [Suspect]
     Indication: ASTHMA
     Dosage: 0.4/20, TWICE DAILY
     Route: 055
     Dates: start: 20130416, end: 20130522
  2. PULMICORT [Suspect]
     Indication: ASTHMA
     Dosage: 0.4 IN THE MORNINGS
     Route: 055
     Dates: start: 20131001
  3. PULMICORT [Suspect]
     Indication: ASTHMA
     Dosage: 2X1 UNTIL THE CHILDBIRTH
     Route: 055
     Dates: start: 201310
  4. SYMBICORT TH [Concomitant]
     Indication: ASTHMA
     Dosage: 160/ 4.5, TWICE DAILY 1-0-2
     Route: 055
     Dates: start: 20130522, end: 20130828
  5. SYMBICORT TH [Concomitant]
     Indication: ASTHMA
     Dosage: 1-0-2
     Route: 055
  6. SYMBICORT TH [Concomitant]
     Indication: ASTHMA
     Dosage: 2X1
     Route: 055
     Dates: start: 20130829
  7. SYMBICORT TH [Concomitant]
     Indication: ASTHMA
     Dosage: FURTHER DOSAGE REDUCTION UNDER PEAK FLOW CONTROL, UNKNOWN FREQUENCY
     Route: 055
  8. SYMBICORT TH [Concomitant]
     Indication: ASTHMA
     Dosage: EVENINGS
     Route: 055
     Dates: start: 20131001
  9. SULTANOL [Concomitant]
     Dosage: WHEN NEEDED

REACTIONS (3)
  - Exposure during pregnancy [Unknown]
  - Sinusitis [Recovered/Resolved]
  - Metrorrhagia [Recovered/Resolved]
